FAERS Safety Report 6138389-8 (Version None)
Quarter: 2009Q1

REPORT INFORMATION
  Report Type: 
  Country: None (occurrence: None)
  Receive Date: 20090327
  Receipt Date: 20090316
  Transmission Date: 20090719
  Serious: Yes (Other)
  Sender: FDA-Public Use
  Company Number: 09US000238

PATIENT
  Age: 26 Year
  Sex: Female
  Weight: 113.4 kg

DRUGS (1)
  1. OXYMETAZOLINE HCL [Suspect]
     Indication: NASAL DRYNESS
     Dosage: 1 DF, EVERY 3 DAYS, NASAL
     Route: 045
     Dates: start: 20081228, end: 20090131

REACTIONS (1)
  - NASAL SEPTUM PERFORATION [None]
